FAERS Safety Report 24754169 (Version 1)
Quarter: 2024Q4

REPORT INFORMATION
  Report Type: Spontaneous
  Country: US (occurrence: None)
  Receive Date: 20241218
  Receipt Date: 20241218
  Transmission Date: 20250115
  Serious: Yes (Life-Threatening, Hospitalization)
  Sender: Public
  Company Number: None

PATIENT
  Age: 37 Year
  Sex: Female
  Weight: 105.3 kg

DRUGS (7)
  1. MOUNJARO [Suspect]
     Active Substance: TIRZEPATIDE
     Indication: Polycystic ovaries
     Dates: start: 20230218, end: 20230225
  2. WEGOVY [Suspect]
     Active Substance: SEMAGLUTIDE
     Indication: Polycystic ovaries
  3. WEGOVY [Suspect]
     Active Substance: SEMAGLUTIDE
     Indication: Obesity
  4. CLONIDINE TRANSDERMAL SYSTEM [Concomitant]
     Active Substance: CLONIDINE
  5. QULIPTA [Concomitant]
     Active Substance: ATOGEPANT
  6. Biofreeze topical, [Concomitant]
  7. TYLENOL [Concomitant]
     Active Substance: ACETAMINOPHEN

REACTIONS (6)
  - Blood pressure increased [None]
  - Posterior reversible encephalopathy syndrome [None]
  - Tachycardia [None]
  - Anxiety [None]
  - Blood potassium decreased [None]
  - Brain oedema [None]

NARRATIVE: CASE EVENT DATE: 20230219
